FAERS Safety Report 15202771 (Version 1)
Quarter: 2018Q3

REPORT INFORMATION
  Report Type: Spontaneous
  Country: US (occurrence: US)
  Receive Date: 20180627
  Receipt Date: 20180627
  Transmission Date: 20181010
  Serious: Yes (Other)
  Sender: FDA-Public Use
  Company Number: None

PATIENT
  Age: 59 Year
  Sex: Female
  Weight: 69.3 kg

DRUGS (8)
  1. OMEPRAZOLE. [Concomitant]
     Active Substance: OMEPRAZOLE
  2. VITAMIN D [Concomitant]
     Active Substance: CHOLECALCIFEROL
  3. DEXAMETHASONE. [Suspect]
     Active Substance: DEXAMETHASONE
     Indication: PLASMA CELL MYELOMA
     Route: 048
     Dates: start: 20180525, end: 20180627
  4. BENADRYL [Concomitant]
     Active Substance: DIPHENHYDRAMINE HYDROCHLORIDE
  5. TYLENOL [Concomitant]
     Active Substance: ACETAMINOPHEN
  6. FLUTICASONE. [Concomitant]
     Active Substance: FLUTICASONE
  7. REVLIMID [Concomitant]
     Active Substance: LENALIDOMIDE
  8. CALCIUM [Concomitant]
     Active Substance: CALCIUM

REACTIONS (10)
  - Diarrhoea [None]
  - Fatigue [None]
  - Vomiting [None]
  - Hyperhidrosis [None]
  - Feeling jittery [None]
  - Palpitations [None]
  - Muscle spasms [None]
  - Neuropathy peripheral [None]
  - Pollakiuria [None]
  - Spinal pain [None]
